FAERS Safety Report 10076457 (Version 1)
Quarter: 2014Q2

REPORT INFORMATION
  Report Type: Spontaneous
  Country: ES (occurrence: ES)
  Receive Date: 20140414
  Receipt Date: 20140414
  Transmission Date: 20141212
  Serious: Yes (Hospitalization, Other)
  Sender: FDA-Public Use
  Company Number: ES-JNJFOC-20140408755

PATIENT
  Age: 52 Year
  Sex: Female

DRUGS (8)
  1. RIVAROXABAN [Suspect]
     Indication: ATRIAL FIBRILLATION
     Route: 048
     Dates: start: 201301
  2. RIVAROXABAN [Suspect]
     Indication: CEREBROVASCULAR ACCIDENT PROPHYLAXIS
     Route: 048
     Dates: start: 201301
  3. RIVAROXABAN [Suspect]
     Indication: THROMBOSIS PROPHYLAXIS
     Route: 048
     Dates: start: 201301
  4. DRONEDARONE [Suspect]
     Indication: ATRIAL FIBRILLATION
     Dosage: 400MG/24HRS
     Route: 065
     Dates: start: 201301
  5. TACROLIMUS [Suspect]
     Indication: RENAL TRANSPLANT
     Route: 065
  6. TACROLIMUS [Suspect]
     Indication: RENAL TRANSPLANT
     Route: 065
  7. TACROLIMUS [Suspect]
     Indication: RENAL TRANSPLANT
     Route: 065
  8. TACROLIMUS [Suspect]
     Indication: RENAL TRANSPLANT
     Route: 065

REACTIONS (5)
  - Renal impairment [Recovering/Resolving]
  - Immunosuppressant drug level increased [Recovered/Resolved]
  - Potentiating drug interaction [Recovered/Resolved]
  - Oedema [Recovering/Resolving]
  - Fatigue [Unknown]
